FAERS Safety Report 9260381 (Version 1)
Quarter: 2013Q2

REPORT INFORMATION
  Report Type: Spontaneous
  Country: US (occurrence: US)
  Receive Date: 20130429
  Receipt Date: 20130429
  Transmission Date: 20140414
  Serious: Yes (Hospitalization)
  Sender: FDA-Public Use
  Company Number: US-BAYER-2013-051363

PATIENT
  Age: 40 Year
  Sex: Female
  Weight: 86 kg

DRUGS (13)
  1. YAZ [Suspect]
  2. YASMIN [Suspect]
  3. OCELLA [Suspect]
  4. METFORMIN [Concomitant]
     Dosage: 1 DF, UNK
  5. FLUCONAZOLE [Concomitant]
     Dosage: 1 TABLET, 1 TIME
  6. PROAIR HFA [Concomitant]
     Dosage: 2 PUFFS AS NEEDED
  7. SPIRONOLACTONE [Concomitant]
     Dosage: UNK
     Dates: start: 201112, end: 20120228
  8. NORCO [Concomitant]
     Indication: PROCEDURAL PAIN
     Dosage: UNK
     Dates: start: 20120319
  9. OMNICEF [Concomitant]
     Dosage: UNK
     Dates: start: 20120329
  10. KEFLEX [Concomitant]
     Dosage: UNK
     Dates: start: 20120322
  11. METOPROLOL [Concomitant]
  12. PANTOPRAZOLE [Concomitant]
  13. FLAGYL [Concomitant]

REACTIONS (2)
  - Pulmonary embolism [None]
  - Deep vein thrombosis [None]
